FAERS Safety Report 9412989 (Version 1)
Quarter: 2013Q2

REPORT INFORMATION
  Report Type: Spontaneous
  Country: GB (occurrence: GB)
  Receive Date: 20130625
  Receipt Date: 20130625
  Transmission Date: 20140414
  Serious: Yes (Hospitalization, Other)
  Sender: FDA-Public Use
  Company Number: CL-494(1)-2013

PATIENT
  Age: 36 Year
  Sex: Female

DRUGS (1)
  1. METRONIDAZOLE [Suspect]
     Indication: PARASITIC GASTROENTERITIS
     Dates: start: 20130402, end: 20130409

REACTIONS (4)
  - Contusion [None]
  - Confusional state [None]
  - Pain in extremity [None]
  - Psychotic disorder [None]
